FAERS Safety Report 14312441 (Version 4)
Quarter: 2018Q1

REPORT INFORMATION
  Report Type: Spontaneous
  Country: GB (occurrence: GB)
  Receive Date: 20171221
  Receipt Date: 20180306
  Transmission Date: 20180509
  Serious: Yes (Death, Other)
  Sender: FDA-Public Use
  Company Number: GB-JNJFOC-20171211935

PATIENT
  Age: 17 Year
  Sex: Female

DRUGS (4)
  1. CODEINE PHOSPHATE [Suspect]
     Active Substance: CODEINE PHOSPHATE
     Indication: PRODUCT USED FOR UNKNOWN INDICATION
     Route: 065
  2. PARACETAMOL [Suspect]
     Active Substance: ACETAMINOPHEN
     Route: 065
  3. CANNABIS SATIVA [Suspect]
     Active Substance: CANNABIS SATIVA SUBSP. SATIVA FLOWERING TOP
     Indication: PRODUCT USED FOR UNKNOWN INDICATION
     Route: 065
  4. PARACETAMOL [Suspect]
     Active Substance: ACETAMINOPHEN
     Indication: PRODUCT USED FOR UNKNOWN INDICATION
     Route: 065

REACTIONS (3)
  - Overdose [Fatal]
  - Myocardial infarction [Fatal]
  - Hypotension [Fatal]
